FAERS Safety Report 4609207-1 (Version None)
Quarter: 2005Q1

REPORT INFORMATION
  Report Type: 
  Country: None (occurrence: None)
  Receive Date: 20050315
  Receipt Date: 20050307
  Transmission Date: 20050727
  Serious: Yes (Hospitalization)
  Sender: FDA-Public Use
  Company Number: US-MERCK-0503USA00903

PATIENT
  Age: 50 Year
  Sex: Female

DRUGS (6)
  1. VIOXX [Suspect]
     Indication: HEADACHE
     Route: 048
  2. VIOXX [Suspect]
     Route: 048
     Dates: start: 20030601, end: 20030601
  3. VIOXX [Suspect]
     Indication: NECK PAIN
     Route: 048
  4. VIOXX [Suspect]
     Route: 048
     Dates: start: 20030601, end: 20030601
  5. FLEXERIL [Concomitant]
     Route: 065
  6. IMIPRAMINE HYDROCHLORIDE [Concomitant]
     Indication: SLEEP DISORDER
     Route: 065

REACTIONS (10)
  - ASTHMA [None]
  - BLOOD PRESSURE INCREASED [None]
  - BLOOD URINE PRESENT [None]
  - BUNDLE BRANCH BLOCK [None]
  - CONFUSIONAL STATE [None]
  - COUGH [None]
  - HEADACHE [None]
  - OEDEMA [None]
  - PRESCRIBED OVERDOSE [None]
  - VOMITING [None]
